FAERS Safety Report 20899839 (Version 5)
Quarter: 2022Q4

REPORT INFORMATION
  Report Type: Spontaneous
  Country: CA (occurrence: CA)
  Receive Date: 20220601
  Receipt Date: 20221203
  Transmission Date: 20230113
  Serious: Yes (Other)
  Sender: FDA-Public Use
  Company Number: CA-CELLTRION INC.-2022CA008247

PATIENT

DRUGS (22)
  1. INFLIXIMAB [Suspect]
     Active Substance: INFLIXIMAB
     Indication: Crohn^s disease
     Dosage: 5 MG/KG
     Route: 042
     Dates: start: 20220423, end: 20220423
  2. INFLIXIMAB [Suspect]
     Active Substance: INFLIXIMAB
     Dosage: 80 MG (10MG/KG)
     Route: 042
     Dates: start: 20220507, end: 20220507
  3. INFLIXIMAB [Suspect]
     Active Substance: INFLIXIMAB
     Dosage: 10 MG/KG, WEEK 6 DOSE THEN EVERY 8 WEEKS
     Route: 042
     Dates: start: 20220607
  4. INFLIXIMAB [Suspect]
     Active Substance: INFLIXIMAB
     Dosage: 10 MG/KG, WEEK 6 DOSE THEN EVERY 8 WEEKS
     Route: 042
     Dates: start: 20220803
  5. INFLIXIMAB [Suspect]
     Active Substance: INFLIXIMAB
     Dosage: 10 MG/KG, WEEK 6 DOSE THEN EVERY 8 WEEKS
     Route: 042
     Dates: start: 20220927
  6. INFLIXIMAB [Suspect]
     Active Substance: INFLIXIMAB
     Dosage: 10 MG/KG, WEEK 6 DOSE THEN EVERY 8 WEEKS
     Route: 042
     Dates: start: 20221123
  7. INULIN [Concomitant]
     Active Substance: INULIN
     Dosage: 1 DF
  8. INULIN [Concomitant]
     Active Substance: INULIN
     Dosage: 1 DF, DOSAGE INFO UNK
     Route: 065
  9. CODEINE SULFATE [Concomitant]
     Active Substance: CODEINE SULFATE
     Dosage: 1 DF
  10. CODEINE SULFATE [Concomitant]
     Active Substance: CODEINE SULFATE
     Dosage: 1 DF, DOSAGE INFO UNK
     Route: 065
  11. HYDROMORPHONE [Concomitant]
     Active Substance: HYDROMORPHONE
     Dosage: 1 DF
  12. HYDROMORPHONE [Concomitant]
     Active Substance: HYDROMORPHONE
     Dosage: 1 DF, DOSAGE INFO UNK
     Route: 065
  13. OZEMPIC [Concomitant]
     Active Substance: SEMAGLUTIDE
     Dosage: 1 DF
  14. OZEMPIC [Concomitant]
     Active Substance: SEMAGLUTIDE
     Dosage: 1 DF, DOSAGE INFO UNK
     Route: 065
  15. PANTOPRAZOLE [Concomitant]
     Active Substance: PANTOPRAZOLE
     Dosage: 40 MG 1X/DAY
  16. PANTOPRAZOLE [Concomitant]
     Active Substance: PANTOPRAZOLE
     Dosage: 40 MG 1X/DAY
     Route: 065
  17. PREDNISONE [Concomitant]
     Active Substance: PREDNISONE
     Dosage: 40 MG, 1X/DAY
  18. PREDNISONE [Concomitant]
     Active Substance: PREDNISONE
     Dosage: 40 MG, 1X/DAY
     Route: 065
  19. SYNTHROID [Concomitant]
     Active Substance: LEVOTHYROXINE SODIUM
     Dosage: 1 DF
  20. SYNTHROID [Concomitant]
     Active Substance: LEVOTHYROXINE SODIUM
     Dosage: 1 DF, DOSAGE INFO UNK
     Route: 065
  21. XIGDUO XR [Concomitant]
     Active Substance: DAPAGLIFLOZIN PROPANEDIOL\METFORMIN HYDROCHLORIDE
     Dosage: 1 DF
  22. XIGDUO XR [Concomitant]
     Active Substance: DAPAGLIFLOZIN PROPANEDIOL\METFORMIN HYDROCHLORIDE
     Dosage: 1 DF, DOSAGE INFO UNK
     Route: 065

REACTIONS (6)
  - Therapeutic product effect incomplete [Unknown]
  - Uveitis [Unknown]
  - Condition aggravated [Recovering/Resolving]
  - Oedema peripheral [Unknown]
  - Arthralgia [Unknown]
  - Aphthous ulcer [Unknown]

NARRATIVE: CASE EVENT DATE: 20220607
